FAERS Safety Report 25381129 (Version 2)
Quarter: 2025Q2

REPORT INFORMATION
  Report Type: Spontaneous
  Country: BR (occurrence: BR)
  Receive Date: 20250530
  Receipt Date: 20250605
  Transmission Date: 20250716
  Serious: No
  Sender: PFIZER
  Company Number: BR-PFIZER INC-202500105893

PATIENT
  Age: 11 Year
  Sex: Male

DRUGS (1)
  1. SOMATROGON [Suspect]
     Active Substance: SOMATROGON

REACTIONS (4)
  - Incorrect dose administered [Unknown]
  - Product communication issue [Unknown]
  - Device use error [Unknown]
  - Device delivery system issue [Unknown]
